FAERS Safety Report 16438646 (Version 1)
Quarter: 2019Q2

REPORT INFORMATION
  Report Type: Spontaneous
  Country: FR (occurrence: FR)
  Receive Date: 20190617
  Receipt Date: 20190617
  Transmission Date: 20190711
  Serious: Yes (Hospitalization)
  Sender: FDA-Public Use
  Company Number: FR-TEVA-2019-FR-1063233

PATIENT
  Age: 72 Year
  Sex: Male
  Weight: 94 kg

DRUGS (13)
  1. ALPRAZOLAM. [Concomitant]
     Active Substance: ALPRAZOLAM
  2. NEBIVOLOL BASE [Concomitant]
  3. ESIDREX 25 MG TABLET [Concomitant]
  4. DIFFU K, CAPSULA [Concomitant]
  5. PAROXETINE. [Concomitant]
     Active Substance: PAROXETINE
  6. PREVISCAN 20 MG, SCORED TABLET [Concomitant]
     Active Substance: FLUINDIONE
  7. ALLOPURINOL. [Concomitant]
     Active Substance: ALLOPURINOL
  8. ESOMEPRAZOLE. [Concomitant]
     Active Substance: ESOMEPRAZOLE MAGNESIUM
  9. REPAGLINIDE. [Concomitant]
     Active Substance: REPAGLINIDE
  10. SPIRONOLACTONE. [Suspect]
     Active Substance: SPIRONOLACTONE
     Indication: CARDIAC FAILURE
     Dosage: 25 MILLIGRAM
     Route: 048
     Dates: start: 20190318, end: 20190506
  11. AMIODARONE BASE [Concomitant]
     Active Substance: AMIODARONE
  12. ZOPICLONE [Concomitant]
     Active Substance: ZOPICLONE
  13. FUROSEMIDE. [Concomitant]
     Active Substance: FUROSEMIDE

REACTIONS (1)
  - Vascular purpura [Recovering/Resolving]

NARRATIVE: CASE EVENT DATE: 20190415
